FAERS Safety Report 6037533-0 (Version None)
Quarter: 2009Q1

REPORT INFORMATION
  Report Type: 
  Country: None (occurrence: None)
  Receive Date: 20090114
  Receipt Date: 20090106
  Transmission Date: 20090719
  Serious: Yes (Hospitalization)
  Sender: FDA-Public Use
  Company Number: US-ELI_LILLY_AND_COMPANY-US200901000688

PATIENT
  Sex: Female
  Weight: 74.83 kg

DRUGS (2)
  1. BYETTA [Suspect]
     Indication: TYPE 2 DIABETES MELLITUS
     Dosage: 5 UG, 2/D
     Route: 058
     Dates: start: 20060101
  2. BYETTA [Suspect]
     Dosage: 5 UG, 2/D
     Route: 058

REACTIONS (6)
  - ARTHRITIS [None]
  - DIARRHOEA [None]
  - FALL [None]
  - MENISCUS LESION [None]
  - VIRAL INFECTION [None]
  - VOMITING [None]
